FAERS Safety Report 16571127 (Version 1)
Quarter: 2019Q3

REPORT INFORMATION
  Report Type: Spontaneous
  Country: FR (occurrence: FR)
  Receive Date: 20190715
  Receipt Date: 20190715
  Transmission Date: 20191004
  Serious: Yes (Life-Threatening, Hospitalization, Other)
  Sender: FDA-Public Use
  Company Number: FR-SA-2019SA186667

PATIENT
  Age: 56 Year
  Sex: Female
  Weight: 75 kg

DRUGS (2)
  1. ETHAMBUTOL [Suspect]
     Active Substance: ETHAMBUTOL HYDROCHLORIDE
     Indication: TUBERCULOSIS
     Dosage: 3 DF, TOTAL
     Route: 048
     Dates: start: 20190614, end: 20190614
  2. RIFATER [Suspect]
     Active Substance: ISONIAZID\PYRAZINAMIDE\RIFAMPIN
     Dosage: 6 DF, 1X
     Route: 048
     Dates: start: 20190614, end: 20190614

REACTIONS (2)
  - Disseminated intravascular coagulation [Recovered/Resolved]
  - Anaphylactic shock [Recovered/Resolved]

NARRATIVE: CASE EVENT DATE: 20190614
